FAERS Safety Report 4430804-0 (Version None)
Quarter: 2004Q3

REPORT INFORMATION
  Report Type: 
  Country: None (occurrence: None)
  Receive Date: 20040823
  Receipt Date: 20040629
  Transmission Date: 20050211
  Serious: Yes (Death)
  Sender: FDA-Public Use
  Company Number: 200416500GDDC

PATIENT
  Age: 35 Year
  Sex: Male

DRUGS (5)
  1. LANTUS [Suspect]
     Indication: DIABETES MELLITUS NON-INSULIN-DEPENDENT
     Dosage: DOSE UNIT: UNITS
     Route: 058
     Dates: start: 20030801, end: 20040601
  2. METFORMIN HCL [Concomitant]
     Route: 048
  3. FENOFIBRATE [Concomitant]
     Route: 048
  4. ATENOLOL [Concomitant]
     Route: 048
  5. CLOZAPINE [Concomitant]
     Route: 048

REACTIONS (1)
  - DEATH [None]
